FAERS Safety Report 6442069-9 (Version None)
Quarter: 2009Q4

REPORT INFORMATION
  Report Type: 
  Country: None (occurrence: None)
  Receive Date: 20091116
  Receipt Date: 20091102
  Transmission Date: 20100525
  Serious: Yes (Other)
  Sender: FDA-Public Use
  Company Number: PHHY2009FR48754

PATIENT
  Age: 20 Year
  Sex: Male

DRUGS (1)
  1. PAMIDRONATE DISODIUM [Suspect]
     Indication: COMPLEX REGIONAL PAIN SYNDROME
     Dosage: ONE PERFUSION

REACTIONS (1)
  - COSTOCHONDRITIS [None]
